FAERS Safety Report 16961549 (Version 1)
Quarter: 2019Q4

REPORT INFORMATION
  Report Type: Spontaneous
  Country: BR (occurrence: BR)
  Receive Date: 20191025
  Receipt Date: 20191025
  Transmission Date: 20200122
  Serious: Yes (Congenital Anomaly, Other)
  Sender: FDA-Public Use
  Company Number: BR-BAYER-2019-189869

PATIENT
  Sex: Male
  Weight: 3.12 kg

DRUGS (1)
  1. MIRENA [Suspect]
     Active Substance: LEVONORGESTREL
     Dosage: 20 MCG/24HR, CONT
     Route: 064
     Dates: start: 20140224, end: 201902

REACTIONS (4)
  - Exposure during pregnancy [None]
  - Deafness [None]
  - Talipes [None]
  - Renal fusion anomaly [None]
